FAERS Safety Report 19837270 (Version 1)
Quarter: 2021Q3

REPORT INFORMATION
  Report Type: Spontaneous
  Country: ES (occurrence: ES)
  Receive Date: 20210915
  Receipt Date: 20210915
  Transmission Date: 20211014
  Serious: Yes (Other)
  Sender: FDA-Public Use
  Company Number: ES-ALVOGEN-2021-ALVOGEN-117475

PATIENT
  Sex: Female

DRUGS (1)
  1. ATENOLOL/CHLORTALIDONE [Suspect]
     Active Substance: ATENOLOL\CHLORTHALIDONE
     Indication: HYPERTENSION
     Dosage: 100 MG/25 MG TABLETS, 56 TABLETS
     Route: 048
     Dates: start: 2008, end: 20201008

REACTIONS (1)
  - DNA antibody positive [Recovering/Resolving]

NARRATIVE: CASE EVENT DATE: 2010
